FAERS Safety Report 9001247 (Version 2)
Quarter: 2013Q1

REPORT INFORMATION
  Report Type: Spontaneous
  Country: US (occurrence: US)
  Receive Date: 20130107
  Receipt Date: 20130128
  Transmission Date: 20140127
  Serious: Yes (Other)
  Sender: FDA-Public Use
  Company Number: US-PFIZER INC-2013002265

PATIENT
  Age: 27 Year
  Sex: Female
  Weight: 65 kg

DRUGS (3)
  1. MEDROXYPROGESTERONE ACETATE [Suspect]
     Indication: CONTRACEPTION
     Dosage: UNK
     Route: 030
  2. DEPO-PROVERA [Suspect]
     Indication: CONTRACEPTION
     Dosage: 150 MG, EVERY 3 MONTHS
     Route: 030
     Dates: start: 20121225
  3. LIPITOR [Concomitant]
     Indication: BLOOD CHOLESTEROL INCREASED
     Dosage: 20 MG, 1X/DAY (QD)
     Dates: start: 20120530

REACTIONS (8)
  - Blood cholesterol increased [Unknown]
  - Low density lipoprotein increased [Unknown]
  - Hypersensitivity [Recovered/Resolved]
  - Injection site pruritus [Recovered/Resolved]
  - Injection site pain [Recovered/Resolved]
  - Injection site urticaria [Recovering/Resolving]
  - Inflammation [Recovered/Resolved]
  - Pain in extremity [Not Recovered/Not Resolved]
